FAERS Safety Report 6429493-5 (Version None)
Quarter: 2009Q4

REPORT INFORMATION
  Report Type: 
  Country: None (occurrence: None)
  Receive Date: 20091105
  Receipt Date: 20091029
  Transmission Date: 20100525
  Serious: Yes (Hospitalization)
  Sender: FDA-Public Use
  Company Number: AU-ABBOTT-09P-008-0605526-00

PATIENT
  Sex: Male

DRUGS (6)
  1. KALETRA [Suspect]
     Indication: HIV INFECTION
     Dosage: 2 DOSE UNSPECIFIED DAILY
     Dates: start: 20090303
  2. FLUCONAZOLE [Suspect]
     Indication: HIV INFECTION
     Dosage: 200MG DAILY
     Dates: start: 20090324
  3. INTELENCE [Suspect]
     Indication: DRUG USE FOR UNKNOWN INDICATION
     Route: 048
     Dates: start: 20090303
  4. RALTEGRAVIR [Suspect]
     Indication: HIV INFECTION
     Dosage: 800MG DAILY
     Dates: start: 20090303
  5. TENOFOVIR DISOPROXIL FUMARATE [Suspect]
     Indication: HIV INFECTION
     Dosage: 300MG DAILY
     Dates: start: 20090310
  6. ZIDOVUDINE [Suspect]
     Indication: HIV INFECTION
     Dosage: 600MG DAILY
     Dates: start: 20090105

REACTIONS (2)
  - DIARRHOEA [None]
  - NEUTROPENIA [None]
